FAERS Safety Report 6433901-3 (Version None)
Quarter: 2009Q4

REPORT INFORMATION
  Report Type: 
  Country: None (occurrence: None)
  Receive Date: 20091106
  Receipt Date: 20091106
  Transmission Date: 20100525
  Serious: Yes (Hospitalization)
  Sender: FDA-Public Use
  Company Number: None

PATIENT
  Age: 19 Year
  Sex: Male

DRUGS (2)
  1. CHLORPHENIRAMINE MALEATE [Suspect]
     Indication: SINUSITIS
     Dosage: 64 MG UNKNOWN PO
     Route: 048
     Dates: start: 20090909, end: 20090910
  2. DEXTROMETHORPHAN HYDROBROMIDE [Suspect]
     Indication: SINUSITIS
     Dosage: 480 MG UNKNOWN PO
     Route: 048
     Dates: start: 20090909, end: 20090910

REACTIONS (6)
  - ANXIETY [None]
  - MULTIPLE DRUG OVERDOSE ACCIDENTAL [None]
  - MULTIPLE DRUG OVERDOSE INTENTIONAL [None]
  - RESPIRATORY DEPRESSION [None]
  - SEDATION [None]
  - SUICIDE ATTEMPT [None]
